FAERS Safety Report 15942405 (Version 15)
Quarter: 2025Q1

REPORT INFORMATION
  Report Type: Report from Study
  Country: CO (occurrence: CO)
  Receive Date: 20190210
  Receipt Date: 20250317
  Transmission Date: 20250409
  Serious: Yes (Hospitalization, Other)
  Sender: NOVARTIS
  Company Number: PHHY2017CO114141

PATIENT
  Sex: Female
  Weight: 61 kg

DRUGS (10)
  1. GILENYA [Suspect]
     Active Substance: FINGOLIMOD HYDROCHLORIDE
     Indication: Multiple sclerosis
     Dosage: 0.5 MG, QD (Q24H)
     Route: 048
     Dates: start: 201706
  2. GILENYA [Suspect]
     Active Substance: FINGOLIMOD HYDROCHLORIDE
     Dosage: 0.5 MG, QD (Q24H)
     Route: 048
     Dates: start: 20170715
  3. GILENYA [Suspect]
     Active Substance: FINGOLIMOD HYDROCHLORIDE
     Dosage: 0.5 MG, QD
     Route: 048
     Dates: start: 20170726
  4. GILENYA [Suspect]
     Active Substance: FINGOLIMOD HYDROCHLORIDE
     Dosage: 0.5 MG, QD
     Route: 048
     Dates: start: 20180725, end: 201904
  5. GILENYA [Suspect]
     Active Substance: FINGOLIMOD HYDROCHLORIDE
     Route: 048
     Dates: start: 201707
  6. GILENYA [Suspect]
     Active Substance: FINGOLIMOD HYDROCHLORIDE
     Dosage: 0.5 MG, QD
     Route: 048
     Dates: start: 201906
  7. METFORMIN HYDROCHLORIDE [Suspect]
     Active Substance: METFORMIN HYDROCHLORIDE
     Indication: Diabetes prophylaxis
     Dosage: 1 DF, QD (IN MORNING)
     Route: 065
  8. Equinacea [Concomitant]
     Indication: Product used for unknown indication
     Dosage: 1 DOSAGE FORM, QD (ONE TABLET IN THE MORNING, 7 YEARS AGO)
     Route: 065
  9. VITAMIN D [Concomitant]
     Active Substance: VITAMIN D NOS
     Indication: Product used for unknown indication
     Dosage: 1 DOSAGE FORM, QD (ONE TABLET IN THE MORNING)
     Route: 065
  10. VITAMIN D [Concomitant]
     Active Substance: VITAMIN D NOS
     Route: 065

REACTIONS (48)
  - Diarrhoea [Recovering/Resolving]
  - Viral infection [Unknown]
  - Headache [Recovered/Resolved]
  - Dehydration [Unknown]
  - Optic neuritis [Unknown]
  - Dizziness [Recovered/Resolved]
  - Vision blurred [Recovered/Resolved]
  - Urinary incontinence [Unknown]
  - Headache [Unknown]
  - Posterior cortical atrophy [Unknown]
  - Thrombocytopenic purpura [Unknown]
  - Hemiparesis [Unknown]
  - Cerebellar hypoplasia [Recovered/Resolved]
  - Myelodysplastic syndrome [Unknown]
  - Eye pain [Unknown]
  - Coagulation factor VII level increased [Unknown]
  - Ecchymosis [Recovered/Resolved]
  - Anaemia [Not Recovered/Not Resolved]
  - Pica [Unknown]
  - Lymph node pain [Unknown]
  - Sarcopenia [Not Recovered/Not Resolved]
  - Contusion [Unknown]
  - Dysphagia [Not Recovered/Not Resolved]
  - Central nervous system lesion [Unknown]
  - Lymphopenia [Unknown]
  - Weight decreased [Not Recovered/Not Resolved]
  - Cerebral disorder [Unknown]
  - Gait disturbance [Unknown]
  - Abdominal pain [Unknown]
  - Abdominal distension [Unknown]
  - Hypotonia [Unknown]
  - Varicella virus test positive [Unknown]
  - Mean arterial pressure decreased [Recovered/Resolved]
  - Stress [Unknown]
  - Onychoclasis [Recovered/Resolved]
  - Haematoma [Unknown]
  - Temperature intolerance [Not Recovered/Not Resolved]
  - Pain [Not Recovered/Not Resolved]
  - Vertigo [Recovering/Resolving]
  - Transaminases abnormal [Recovered/Resolved]
  - Alopecia [Not Recovered/Not Resolved]
  - Asthenia [Not Recovered/Not Resolved]
  - Gastroenteritis [Recovered/Resolved]
  - Fatigue [Not Recovered/Not Resolved]
  - Anxiety [Recovered/Resolved]
  - Product availability issue [Unknown]
  - Product dose omission issue [Unknown]
  - Muscle spasms [Unknown]

NARRATIVE: CASE EVENT DATE: 20170101
